FAERS Safety Report 21967353 (Version 3)
Quarter: 2023Q1

REPORT INFORMATION
  Report Type: Spontaneous
  Country: JP (occurrence: JP)
  Receive Date: 20230208
  Receipt Date: 20230323
  Transmission Date: 20230418
  Serious: Yes (Hospitalization)
  Sender: FDA-Public Use
  Company Number: JP-ABBVIE-4292956

PATIENT
  Age: 40 Year
  Sex: Female

DRUGS (2)
  1. RINVOQ [Suspect]
     Active Substance: UPADACITINIB
     Indication: Colitis ulcerative
     Route: 048
     Dates: start: 20221108, end: 20230129
  2. PREDNISOLONE [Concomitant]
     Active Substance: PREDNISOLONE
     Indication: Colitis ulcerative

REACTIONS (3)
  - Meningitis viral [Recovered/Resolved]
  - Herpes zoster [Recovered/Resolved]
  - Post herpetic neuralgia [Unknown]

NARRATIVE: CASE EVENT DATE: 20230101
